FAERS Safety Report 16033211 (Version 1)
Quarter: 2019Q1

REPORT INFORMATION
  Report Type: Spontaneous
  Country: SE (occurrence: SE)
  Receive Date: 20190305
  Receipt Date: 20190305
  Transmission Date: 20190418
  Serious: Yes (Hospitalization)
  Sender: FDA-Public Use
  Company Number: SE-JNJFOC-20190234139

PATIENT
  Sex: Male

DRUGS (2)
  1. LOPERAMIDE [Suspect]
     Active Substance: LOPERAMIDE
     Indication: PRODUCT USED FOR UNKNOWN INDICATION
     Dosage: 29-JAN-2018 OR 30-JAN-2018
     Route: 048
     Dates: start: 201801, end: 201801
  2. LOPERAMIDE [Suspect]
     Active Substance: LOPERAMIDE
     Route: 048

REACTIONS (4)
  - Drug abuse [Unknown]
  - Electrocardiogram QRS complex prolonged [Unknown]
  - Intentional overdose [Unknown]
  - Palpitations [Unknown]

NARRATIVE: CASE EVENT DATE: 201801
